FAERS Safety Report 15580357 (Version 1)
Quarter: 2018Q4

REPORT INFORMATION
  Report Type: Spontaneous
  Country: DE (occurrence: DE)
  Receive Date: 20181102
  Receipt Date: 20181102
  Transmission Date: 20190205
  Serious: Yes (Congenital Anomaly)
  Sender: FDA-Public Use
  Company Number: DE-ASTRAZENECA-2018SF41019

PATIENT
  Age: 1 Day
  Sex: Male
  Weight: 2.9 kg

DRUGS (6)
  1. LAMOTRIGINE. [Suspect]
     Active Substance: LAMOTRIGINE
     Indication: DEPRESSION
     Dosage: 200 [MG/D (DOWN TO 25) ]/ DOSAGE REDUCED FROM GW 16+6, FINALLY 25MG/D
     Route: 064
     Dates: start: 20170528, end: 20180212
  2. CLOMIPRAMINE [Suspect]
     Active Substance: CLOMIPRAMINE
     Indication: DEPRESSION
     Dosage: 300 [MG/D (DOWN TO 112.5) ]/ DOSAGE SLOWLY REDUCED FROM GW 16+6
     Route: 064
     Dates: start: 20170528, end: 20171113
  3. FOLIC ACID. [Concomitant]
     Active Substance: FOLIC ACID
     Indication: PROPHYLAXIS OF NEURAL TUBE DEFECT
     Route: 064
  4. SEROQUEL [Suspect]
     Active Substance: QUETIAPINE FUMARATE
     Indication: DEPRESSION
     Dosage: 150 [MG/D (DOWN TO 25) ]/ DOSAGE REDUCED
     Route: 064
     Dates: start: 20170528, end: 20180212
  5. VENLAFAXINE HYDROCHLORIDE. [Suspect]
     Active Substance: VENLAFAXINE HYDROCHLORIDE
     Indication: DEPRESSION
     Dosage: 300 [MG/D (DOWN TO 150) ]/ DOSAGE REDUCED TO 150MG/D FROM GW 16+6
     Route: 064
     Dates: start: 20170528, end: 20180212
  6. RISPERDAL [Suspect]
     Active Substance: RISPERIDONE
     Indication: DEPRESSION
     Dosage: 3 [MG/D (DOWN TO 2) ]/ 2-3 MG/D
     Route: 064
     Dates: start: 20170528, end: 20170922

REACTIONS (3)
  - Talipes [Unknown]
  - Ventricular septal defect [Unknown]
  - Atrial septal defect [Unknown]

NARRATIVE: CASE EVENT DATE: 20180212
